FAERS Safety Report 18326874 (Version 1)
Quarter: 2020Q3

REPORT INFORMATION
  Report Type: Spontaneous
  Country: US (occurrence: US)
  Receive Date: 20200930
  Receipt Date: 20200930
  Transmission Date: 20201103
  Serious: Yes (Hospitalization)
  Sender: FDA-Public Use
  Company Number: US-ROCHE-2683120

PATIENT
  Sex: Male

DRUGS (9)
  1. ACETAMINOPHEN. [Concomitant]
     Active Substance: ACETAMINOPHEN
  2. FUROSEMIDE. [Concomitant]
     Active Substance: FUROSEMIDE
  3. XARELTO [Concomitant]
     Active Substance: RIVAROXABAN
  4. VITAMIN B12 [Concomitant]
     Active Substance: CYANOCOBALAMIN
  5. CALCIUM D [Concomitant]
     Active Substance: CALCIUM\VITAMIN D
  6. ASPIRIN 81 [Concomitant]
     Active Substance: ASPIRIN
  7. LORATADINE. [Concomitant]
     Active Substance: LORATADINE
  8. ZELBORAF [Suspect]
     Active Substance: VEMURAFENIB
     Indication: METASTASES TO CENTRAL NERVOUS SYSTEM
     Route: 048
  9. LOSARTAN POTASSIUM. [Concomitant]
     Active Substance: LOSARTAN POTASSIUM

REACTIONS (5)
  - Blood uric acid increased [Recovered/Resolved]
  - Blood creatinine decreased [Recovered/Resolved]
  - Intentional product use issue [Unknown]
  - Renal pain [Recovered/Resolved]
  - Off label use [Unknown]
